FAERS Safety Report 9316612 (Version 1)
Quarter: 2013Q2

REPORT INFORMATION
  Report Type: Spontaneous
  Country: US (occurrence: None)
  Receive Date: 20130528
  Receipt Date: 20130528
  Transmission Date: 20140414
  Serious: Yes (Life-Threatening, Hospitalization, Other)
  Sender: FDA-Public Use
  Company Number: None

PATIENT
  Age: 41 Year
  Sex: Male
  Weight: 70.31 kg

DRUGS (1)
  1. CYMBALTA [Suspect]
     Indication: DEPRESSION
     Route: 048
     Dates: start: 20130409, end: 20130518

REACTIONS (15)
  - Muscle spasms [None]
  - Pain [None]
  - Headache [None]
  - Fatigue [None]
  - Constipation [None]
  - Local swelling [None]
  - Swelling face [None]
  - Dry mouth [None]
  - Dehydration [None]
  - Hallucination [None]
  - Disturbance in attention [None]
  - Dissociation [None]
  - Suicide attempt [None]
  - Depression [None]
  - Emotional disorder [None]
